FAERS Safety Report 6559002-1 (Version None)
Quarter: 2010Q1

REPORT INFORMATION
  Report Type: 
  Country: None (occurrence: None)
  Receive Date: 20100129
  Receipt Date: 20100122
  Transmission Date: 20100710
  Serious: Yes (Hospitalization)
  Sender: FDA-Public Use
  Company Number: US-ELI_LILLY_AND_COMPANY-US201001005079

PATIENT
  Sex: Female

DRUGS (2)
  1. HUMALOG MIX 75/25 [Suspect]
     Dosage: 30 U, EACH MORNING
     Dates: start: 20000101
  2. HUMALOG MIX 75/25 [Suspect]
     Dosage: 20 U, 2/D
     Dates: start: 20000101

REACTIONS (6)
  - FALL [None]
  - HYPOAESTHESIA [None]
  - LOWER LIMB FRACTURE [None]
  - VISION BLURRED [None]
  - VISUAL ACUITY REDUCED [None]
  - WRONG TECHNIQUE IN DRUG USAGE PROCESS [None]
